FAERS Safety Report 7283030-4 (Version None)
Quarter: 2011Q1

REPORT INFORMATION
  Report Type: 
  Country: None (occurrence: None)
  Receive Date: 20110209
  Receipt Date: 20110202
  Transmission Date: 20110831
  Serious: Yes (Hospitalization)
  Sender: FDA-Public Use
  Company Number: US-US-EMD SERONO, INC.-234621K09USA

PATIENT
  Sex: Female

DRUGS (9)
  1. REBIF [Suspect]
     Indication: MULTIPLE SCLEROSIS
     Route: 058
     Dates: start: 20060726, end: 20090424
  2. REBIF [Suspect]
     Route: 058
     Dates: start: 20090513, end: 20100126
  3. PROVIGIL [Concomitant]
     Indication: FATIGUE
     Route: 065
  4. REBIF [Suspect]
     Route: 058
     Dates: start: 20100510
  5. IBUPROFEN [Concomitant]
     Indication: ARTHRALGIA
     Route: 065
  6. FOSINOPRIL SODIUM [Concomitant]
     Indication: HYPERTENSION
     Route: 065
  7. XANAX [Concomitant]
     Indication: STRESS
     Route: 065
  8. EFFEXOR [Concomitant]
     Indication: HOT FLUSH
     Route: 065
  9. HYDROCHLOROTHIAZIDE [Concomitant]
     Indication: HYPERTENSION
     Route: 065

REACTIONS (8)
  - DECREASED APPETITE [None]
  - NON-SMALL CELL LUNG CANCER RECURRENT [None]
  - PNEUMOTHORAX [None]
  - INFLUENZA LIKE ILLNESS [None]
  - NAUSEA [None]
  - PYREXIA [None]
  - LYMPH NODES SCAN ABNORMAL [None]
  - TRAUMATIC LUNG INJURY [None]
